FAERS Safety Report 6169923-X (Version None)
Quarter: 2009Q2

REPORT INFORMATION
  Report Type: 
  Country: None (occurrence: None)
  Receive Date: 20090428
  Receipt Date: 20081216
  Transmission Date: 20091009
  Serious: No
  Sender: FDA-Public Use
  Company Number: A0761354A

PATIENT
  Age: 82 Year
  Sex: Female

DRUGS (11)
  1. SEREVENT [Suspect]
     Indication: CHRONIC OBSTRUCTIVE PULMONARY DISEASE
     Dosage: 2PUFF TWICE PER DAY
     Route: 055
     Dates: start: 20081126, end: 20081214
  2. ATROVENT [Concomitant]
  3. METFORMIN HCL [Concomitant]
  4. VERAPAMIL [Concomitant]
  5. GLIPIZIDE [Concomitant]
  6. FAMOTIDINE [Concomitant]
  7. LISINOPRIL [Concomitant]
  8. PREDNISONE [Concomitant]
  9. VITAMIN D [Concomitant]
  10. ASCORBIC ACID [Concomitant]
  11. LIPITOR [Concomitant]

REACTIONS (2)
  - DRUG INEFFECTIVE [None]
  - DYSPNOEA [None]
